FAERS Safety Report 24724902 (Version 2)
Quarter: 2025Q1

REPORT INFORMATION
  Report Type: Spontaneous
  Country: US (occurrence: US)
  Receive Date: 20241212
  Receipt Date: 20250101
  Transmission Date: 20250409
  Serious: Yes (Other)
  Sender: TEVA
  Company Number: US-TEVA-VS-3272395

PATIENT
  Sex: Female

DRUGS (6)
  1. PREDNISONE [Suspect]
     Active Substance: PREDNISONE
     Indication: Immune-complex membranoproliferative glomerulonephritis
     Route: 065
  2. PREDNISONE [Suspect]
     Active Substance: PREDNISONE
     Indication: Immune-complex membranoproliferative glomerulonephritis
     Route: 065
  3. PREDNISONE [Suspect]
     Active Substance: PREDNISONE
     Indication: Immune-complex membranoproliferative glomerulonephritis
     Route: 065
  4. PREDNISONE [Suspect]
     Active Substance: PREDNISONE
     Indication: Immune-complex membranoproliferative glomerulonephritis
     Route: 065
  5. CORTICOTROPIN [Concomitant]
     Active Substance: CORTICOTROPIN
     Indication: Immune-complex membranoproliferative glomerulonephritis
     Route: 050
  6. MYCOPHENOLATE MOFETIL [Suspect]
     Active Substance: MYCOPHENOLATE MOFETIL
     Indication: Immune-complex membranoproliferative glomerulonephritis
     Route: 065

REACTIONS (4)
  - Rebound effect [Unknown]
  - Immune-complex membranoproliferative glomerulonephritis [Unknown]
  - Gastrointestinal disorder [Unknown]
  - Suicidal ideation [Unknown]
